FAERS Safety Report 8351392-2 (Version None)
Quarter: 2012Q2

REPORT INFORMATION
  Report Type: 
  Country: None (occurrence: None)
  Receive Date: 20120510
  Receipt Date: 20120507
  Transmission Date: 20120825
  Serious: Yes (Hospitalization)
  Sender: FDA-Public Use
  Company Number: JP-MERCK-1204USA00875

PATIENT
  Age: 38 Year
  Sex: Female

DRUGS (23)
  1. LOXOPROFEN SODIUM [Concomitant]
     Route: 065
  2. THEOPHYLLINE [Concomitant]
     Route: 065
  3. SENNOSIDES [Concomitant]
     Route: 065
  4. RISPERIDONE [Concomitant]
     Route: 065
  5. TIZANIDINE HYDROCHLORIDE [Concomitant]
     Route: 065
  6. BEZAFIBRATE [Concomitant]
     Route: 065
  7. JANUVIA [Suspect]
     Indication: TYPE 2 DIABETES MELLITUS
     Route: 048
  8. LORAZEPAM [Concomitant]
     Route: 065
  9. CODEINE PHOSPHATE [Concomitant]
     Route: 065
  10. LOPERAMIDE HYDROCHLORIDE [Concomitant]
     Route: 065
  11. TAKA-DIASTASE [Concomitant]
     Route: 065
  12. ETIZOLAM [Concomitant]
     Route: 065
  13. PAROXETINE HYDROCHLORIDE [Concomitant]
     Route: 065
  14. ATENOLOL [Concomitant]
     Route: 065
  15. MAGNESIUM OXIDE [Concomitant]
     Route: 065
  16. VALPROATE SODIUM [Concomitant]
     Route: 065
  17. ALLOPURINOL [Concomitant]
     Route: 065
  18. TOPIRAMATE [Concomitant]
     Route: 065
  19. MINOCYCLINE HYDROCHLORIDE [Concomitant]
     Route: 065
  20. LEVOMEPROMAZINE MALEATE [Concomitant]
     Route: 065
  21. NITRAZEPAM [Concomitant]
     Route: 065
  22. ERGOTAMINE TARTRATE [Concomitant]
     Route: 065
  23. LACTOMIN [Concomitant]
     Route: 065

REACTIONS (11)
  - ALTERED STATE OF CONSCIOUSNESS [None]
  - RENAL FAILURE ACUTE [None]
  - RHABDOMYOLYSIS [None]
  - RESPIRATORY DISORDER [None]
  - ANURIA [None]
  - PYREXIA [None]
  - PALLIDOTOMY [None]
  - DECUBITUS ULCER [None]
  - HYPOXIA [None]
  - PNEUMONIA ASPIRATION [None]
  - ACIDOSIS [None]
